FAERS Safety Report 8825690 (Version 1)
Quarter: 2012Q4

REPORT INFORMATION
  Report Type: 
  Country: ES (occurrence: ES)
  Receive Date: 20121004
  Receipt Date: 20121004
  Transmission Date: 20130627
  Serious: Yes (Other)
  Sender: FDA-Public Use
  Company Number: ES-PFIZER INC-2012241659

PATIENT
  Age: 38 Year
  Sex: Male

DRUGS (8)
  1. PHENYTOIN SODIUM [Suspect]
     Indication: CONVULSION
     Route: 042
  2. PHENYTOIN SODIUM [Suspect]
     Dosage: 100-100-100 mg
     Route: 048
  3. LACOSAMIDE [Concomitant]
     Indication: CONVULSION
     Dosage: 100 mg/day
  4. LACOSAMIDE [Concomitant]
     Dosage: 150 mg/day
  5. VALPROIC ACID [Concomitant]
     Indication: CONVULSION
     Dosage: 400-200-500 mg
  6. LEVETIRACETAM [Concomitant]
     Indication: CONVULSION
  7. PROPOFOL [Concomitant]
     Indication: CONVULSION
  8. CLORAZEPATE [Concomitant]
     Indication: CONVULSION

REACTIONS (7)
  - Drug reaction with eosinophilia and systemic symptoms [Recovering/Resolving]
  - Rash generalised [Recovering/Resolving]
  - Pyrexia [Recovering/Resolving]
  - Liver disorder [Unknown]
  - Lymphocytosis [Recovered/Resolved]
  - Hepatic function abnormal [Unknown]
  - Transaminases increased [Recovered/Resolved]
